FAERS Safety Report 7533769-8 (Version None)
Quarter: 2011Q2

REPORT INFORMATION
  Report Type: 
  Country: None (occurrence: None)
  Receive Date: 20110608
  Receipt Date: 20110606
  Transmission Date: 20111010
  Serious: Yes (Other)
  Sender: FDA-Public Use
  Company Number: JP-PFIZER INC-2011113329

PATIENT
  Age: 54 Year
  Sex: Female

DRUGS (8)
  1. METHYCOBAL [Concomitant]
     Dosage: UNK
  2. LYRICA [Suspect]
     Dosage: 75 MG, 2X/DAY
     Dates: start: 20110517
  3. CRESTOR [Concomitant]
     Dosage: 2.5 MG DAILY
     Route: 048
  4. LORAZEPAM [Concomitant]
     Dosage: UNK
  5. CELECOXIB [Concomitant]
     Dosage: 200MG DAILY
  6. LEVOFLOXACIN [Concomitant]
     Indication: CYSTITIS
     Dosage: UNK
     Dates: start: 20110524
  7. DEPAS [Concomitant]
     Dosage: UNK
  8. OLOPATADINE HCL [Concomitant]
     Dosage: UNK

REACTIONS (5)
  - NEPHRITIS [None]
  - CYSTITIS [None]
  - C-REACTIVE PROTEIN INCREASED [None]
  - WHITE BLOOD CELL COUNT INCREASED [None]
  - CHROMATURIA [None]
